FAERS Safety Report 9861980 (Version 2)
Quarter: 2014Q1

REPORT INFORMATION
  Report Type: Spontaneous
  Country: US (occurrence: US)
  Receive Date: 20140203
  Receipt Date: 20140205
  Transmission Date: 20141002
  Serious: Yes (Hospitalization)
  Sender: FDA-Public Use
  Company Number: US-DRREDDYS-USA/USA/14/0037664

PATIENT
  Age: 31 Year
  Sex: Female
  Weight: 75 kg

DRUGS (11)
  1. ZENATANE [Suspect]
     Indication: ACNE
     Route: 065
  2. ZENATANE [Suspect]
     Route: 065
  3. ZENATANE [Suspect]
     Route: 065
  4. CLOBETASOL [Concomitant]
     Indication: PRODUCT USED FOR UNKNOWN INDICATION
     Route: 065
  5. CONJUGATED ESTROGEN-MEDROXYPROGESTERONE [Concomitant]
     Indication: PRODUCT USED FOR UNKNOWN INDICATION
     Route: 065
  6. GLUCAGON [Concomitant]
     Indication: PRODUCT USED FOR UNKNOWN INDICATION
     Route: 065
  7. HUMAN RECOMBINANT INSULIN GLARGINE [Concomitant]
     Indication: DIABETES MELLITUS
     Route: 065
  8. HUMAN RECOMBINANT INSULIN LISPRO [Concomitant]
     Indication: DIABETES MELLITUS
     Route: 065
  9. PHENTERMINE [Concomitant]
     Indication: PRODUCT USED FOR UNKNOWN INDICATION
     Route: 065
  10. TRIAMCINOLONE [Concomitant]
     Indication: PRODUCT USED FOR UNKNOWN INDICATION
     Route: 065
  11. ALEVE [Concomitant]
     Indication: PRODUCT USED FOR UNKNOWN INDICATION
     Route: 065

REACTIONS (7)
  - Fall [Unknown]
  - Lower limb fracture [Unknown]
  - Rash [Recovered/Resolved]
  - Ulcer [Recovered/Resolved]
  - Liver function test abnormal [Unknown]
  - Lip dry [Unknown]
  - Dry eye [Unknown]
